FAERS Safety Report 4668793-6 (Version None)
Quarter: 2005Q2

REPORT INFORMATION
  Report Type: 
  Country: None (occurrence: None)
  Receive Date: 20050519
  Receipt Date: 20050504
  Transmission Date: 20051028
  Serious: Yes (Life-Threatening, Hospitalization)
  Sender: FDA-Public Use
  Company Number: EM2005-0191

PATIENT
  Age: 24 Year
  Sex: Male
  Weight: 73 kg

DRUGS (8)
  1. MACROLIN [Suspect]
     Indication: HIV INFECTION
     Dosage: 4.5 MIU, SUBCUTAN.
     Route: 058
     Dates: start: 20040510, end: 20040514
  2. MACROLIN [Suspect]
     Indication: HIV INFECTION
     Dosage: 4.5 MIU, SUBCUTAN.
     Route: 058
     Dates: start: 20040629, end: 20040703
  3. MACROLIN [Suspect]
     Indication: HIV INFECTION
     Dosage: 4.5 MIU, SUBCUTAN.
     Route: 058
     Dates: start: 20040809, end: 20040813
  4. EPIVIR [Concomitant]
  5. SUSTIVA [Concomitant]
  6. VIREAD [Concomitant]
  7. BACTRIM [Concomitant]
  8. HEPARIN [Concomitant]

REACTIONS (10)
  - BLOOD ALKALINE PHOSPHATASE INCREASED [None]
  - DEEP VEIN THROMBOSIS [None]
  - GAMMA-GLUTAMYLTRANSFERASE INCREASED [None]
  - GENERAL PHYSICAL HEALTH DETERIORATION [None]
  - HAEMOGLOBIN DECREASED [None]
  - LYMPHOPENIA [None]
  - MOUTH ULCERATION [None]
  - PULMONARY TUBERCULOSIS [None]
  - TOOTH EXTRACTION [None]
  - WEIGHT DECREASED [None]
